FAERS Safety Report 22369903 (Version 1)
Quarter: 2023Q2

REPORT INFORMATION
  Report Type: Spontaneous
  Country: GB (occurrence: GB)
  Receive Date: 20230526
  Receipt Date: 20230526
  Transmission Date: 20230722
  Serious: Yes (Other)
  Sender: FDA-Public Use
  Company Number: GB-MHRA-EMIS-3989-e5948264-f2d3-4b2c-9529-023c9af9f190

PATIENT
  Age: 46 Year
  Sex: Male
  Weight: 58.6 kg

DRUGS (2)
  1. LISINOPRIL [Suspect]
     Active Substance: LISINOPRIL
     Indication: Essential hypertension
     Dosage: ONE TO BE TAKEN EACH DAY
     Route: 065
     Dates: start: 20230403, end: 20230515
  2. AMLODIPINE [Concomitant]
     Active Substance: AMLODIPINE BESYLATE
     Indication: Angioedema
     Dosage: ONE TO BE TAKEN EACH DAY
     Route: 065
     Dates: start: 20230406

REACTIONS (1)
  - Angioedema [Recovered/Resolved]
